FAERS Safety Report 9825236 (Version 1)
Quarter: 2013Q4

REPORT INFORMATION
  Report Type: Spontaneous
  Country: US (occurrence: None)
  Receive Date: 20131028
  Receipt Date: 20131028
  Transmission Date: 20140711
  Serious: Yes (Other)
  Sender: FDA-Public Use
  Company Number: 2013US002445

PATIENT
  Age: 42 Year
  Sex: Female
  Weight: 74 kg

DRUGS (4)
  1. ICLUSIG [Suspect]
     Indication: CHRONIC MYELOID LEUKAEMIA
     Route: 048
     Dates: start: 20130624
  2. CLA SUPPLEMENT (LINOLEIC ACID) [Concomitant]
  3. MULTIVITAMIN (VITAMINS NOS) [Concomitant]
  4. BIOTIN (BIOTIN) [Concomitant]

REACTIONS (2)
  - Constipation [None]
  - Dry skin [None]
